FAERS Safety Report 7101817-5 (Version None)
Quarter: 2010Q4

REPORT INFORMATION
  Report Type: 
  Country: None (occurrence: None)
  Receive Date: 20101115
  Receipt Date: 20101102
  Transmission Date: 20110411
  Serious: Yes (Other)
  Sender: FDA-Public Use
  Company Number: PHHY2010AU75923

PATIENT
  Age: 36 Year
  Sex: Female

DRUGS (2)
  1. CYCLOSPORINE [Suspect]
     Indication: EYE DISORDER
     Dosage: UNK
  2. CORTICOSTEROIDS [Concomitant]

REACTIONS (5)
  - CHEST PAIN [None]
  - MULTIPLE FRACTURES [None]
  - OSTEOPOROSIS [None]
  - SPINAL FRACTURE [None]
  - VITAMIN D DECREASED [None]
